FAERS Safety Report 14603933 (Version 1)
Quarter: 2018Q1

REPORT INFORMATION
  Report Type: Spontaneous
  Country: US (occurrence: US)
  Receive Date: 20180305
  Receipt Date: 20180305
  Transmission Date: 20180509
  Serious: Yes (Hospitalization, Other)
  Sender: FDA-Public Use
  Company Number: None

PATIENT
  Age: 64 Year
  Sex: Male
  Weight: 86.6 kg

DRUGS (14)
  1. INSULIN DETEMIR [Concomitant]
     Active Substance: INSULIN DETEMIR
     Dates: start: 20180213, end: 20180227
  2. DEXTROSE 5% IN WATER [Concomitant]
     Dates: start: 20180219, end: 20180219
  3. BACITRATION 100,000 UNIT [Concomitant]
     Dates: start: 20180219, end: 20180219
  4. BACILLUS COAGULANS-INULIN [Concomitant]
     Dates: start: 20180215, end: 20180228
  5. EPHEDRINE + DEXTROSE 5% IN WATER [Concomitant]
     Dates: start: 20180219, end: 20180219
  6. METOPROLOL TARTRATE 12.5 MG TABLET [Concomitant]
     Dates: start: 20180215, end: 20180228
  7. ACETAMINOPHEN. [Concomitant]
     Active Substance: ACETAMINOPHEN
     Dates: start: 20180212, end: 20180216
  8. CEFAZOLIN [Suspect]
     Active Substance: CEFAZOLIN
     Indication: BACTERAEMIA
     Route: 042
     Dates: start: 20180212, end: 20180222
  9. DEXTROSE 5% -0.9% NACL 1000 ML [Concomitant]
     Dates: start: 20180211, end: 20180212
  10. DEXTROSE 50% IN WATER [Concomitant]
     Dates: start: 20180219, end: 20180219
  11. FAMOTIDINE 20MG/2ML IV PUSH [Concomitant]
     Dates: start: 20180209, end: 20180228
  12. ONDANSETRON 4MG/2ML IV SOLUTION [Concomitant]
     Dates: start: 20180219, end: 20180228
  13. FENTANYL 100MCG/2ML [Concomitant]
     Dates: start: 20180219, end: 20180219
  14. DESMOPRESSIN + SODIUM CHLORIDE 0.9% [Concomitant]
     Dates: start: 20180220, end: 20180221

REACTIONS (6)
  - Mouth haemorrhage [None]
  - Epistaxis [None]
  - Hypoprothrombinaemia [None]
  - Coagulopathy [None]
  - International normalised ratio increased [None]
  - Arteriovenous fistula site haemorrhage [None]

NARRATIVE: CASE EVENT DATE: 20180221
